FAERS Safety Report 15542324 (Version 1)
Quarter: 2018Q4

REPORT INFORMATION
  Report Type: Spontaneous
  Country: US (occurrence: US)
  Receive Date: 20181023
  Receipt Date: 20181023
  Transmission Date: 20190205
  Serious: Yes (Other)
  Sender: FDA-Public Use
  Company Number: US-PFIZER INC-2018426731

PATIENT
  Age: 70 Year
  Sex: Female

DRUGS (1)
  1. FLAGYL [Suspect]
     Active Substance: METRONIDAZOLE\METRONIDAZOLE HYDROCHLORIDE
     Dosage: UNK

REACTIONS (10)
  - Cataract [Unknown]
  - Precancerous skin lesion [Unknown]
  - Anxiety [Recovered/Resolved]
  - Hypophagia [Recovered/Resolved]
  - Body height decreased [Unknown]
  - Skin lesion [Unknown]
  - Dysbacteriosis [Recovered/Resolved]
  - Ligament sprain [Unknown]
  - Skin cancer [Recovered/Resolved]
  - Osteoporosis [Unknown]
